FAERS Safety Report 25208104 (Version 1)
Quarter: 2025Q2

REPORT INFORMATION
  Report Type: Spontaneous
  Country: FR (occurrence: FR)
  Receive Date: 20250417
  Receipt Date: 20250417
  Transmission Date: 20250717
  Serious: Yes (Other)
  Sender: TEVA
  Company Number: None

PATIENT
  Age: 36 Year
  Sex: Female

DRUGS (3)
  1. TRAMADOL [Suspect]
     Active Substance: TRAMADOL
     Indication: Product used for unknown indication
     Route: 065
  2. ALCOHOL [Suspect]
     Active Substance: ALCOHOL
     Indication: Product used for unknown indication
     Route: 065
  3. COCAINE [Suspect]
     Active Substance: COCAINE
     Indication: Product used for unknown indication
     Route: 065

REACTIONS (4)
  - Aggression [Recovered/Resolved]
  - Substance use disorder [Unknown]
  - Drug use disorder [Unknown]
  - Agitation [Recovered/Resolved]

NARRATIVE: CASE EVENT DATE: 20241215
